FAERS Safety Report 24332386 (Version 1)
Quarter: 2024Q3

REPORT INFORMATION
  Report Type: Spontaneous
  Country: NL (occurrence: NL)
  Receive Date: 20240918
  Receipt Date: 20240918
  Transmission Date: 20241016
  Serious: Yes (Hospitalization, Other)
  Sender: AUROBINDO
  Company Number: NL-ACTAVIS-2008A-01977

PATIENT
  Age: 44 Year
  Sex: Male

DRUGS (8)
  1. AZATHIOPRINE [Suspect]
     Active Substance: AZATHIOPRINE
     Indication: Immunosuppression
     Dosage: 1 DOSAGE FORM
     Route: 065
  2. PREDNISOLONE [Suspect]
     Active Substance: PREDNISOLONE
     Indication: Immunosuppression
     Dosage: UNK
     Route: 065
  3. MYCOPHENOLIC ACID [Suspect]
     Active Substance: MYCOPHENOLIC ACID
     Indication: Product used for unknown indication
     Dosage: 1 DOSAGE FORM
     Route: 065
  4. BASILIXIMAB [Suspect]
     Active Substance: BASILIXIMAB
     Indication: Immunosuppression
     Dosage: 1 DOSAGE FORM
     Route: 065
  5. METHYLPREDNISOLONE [Suspect]
     Active Substance: METHYLPREDNISOLONE
     Indication: Transplant rejection
     Dosage: 1000 MILLIGRAM
     Route: 065
  6. MEDROL [Suspect]
     Active Substance: METHYLPREDNISOLONE
     Indication: Immunosuppression
     Dosage: 1000 MILLIGRAM
     Route: 048
  7. TACROLIMUS [Suspect]
     Active Substance: TACROLIMUS
     Indication: Immunosuppression
     Dosage: 1 DOSAGE FORM
     Route: 065
  8. MABTHERA [Concomitant]
     Active Substance: RITUXIMAB
     Indication: Product used for unknown indication
     Dosage: 1 DOSAGE FORM
     Route: 065

REACTIONS (14)
  - Transplant rejection [Recovered/Resolved]
  - Post transplant lymphoproliferative disorder [Recovered/Resolved]
  - Paresis [Recovered/Resolved]
  - Sensory loss [Recovered/Resolved]
  - Monoparesis [Recovering/Resolving]
  - Sensory disturbance [Recovered/Resolved]
  - Muscular weakness [Recovered/Resolved]
  - Musculoskeletal pain [Recovered/Resolved]
  - Paralysis [Recovered/Resolved]
  - Arthralgia [Recovered/Resolved]
  - Spinal cord compression [Recovered/Resolved]
  - Lymphadenopathy [Unknown]
  - Meningioma malignant [Recovered/Resolved]
  - Spinal laminectomy [Recovered/Resolved]
